FAERS Safety Report 22000222 (Version 1)
Quarter: 2023Q1

REPORT INFORMATION
  Report Type: Spontaneous
  Country: SE (occurrence: SE)
  Receive Date: 20230216
  Receipt Date: 20230216
  Transmission Date: 20230418
  Serious: Yes (Other)
  Sender: FDA-Public Use
  Company Number: None

PATIENT
  Age: 33 Year
  Sex: Female
  Weight: 58 kg

DRUGS (3)
  1. ESCITALOPRAM OXALATE [Suspect]
     Active Substance: ESCITALOPRAM OXALATE
     Indication: Premenstrual dysphoric disorder
     Dosage: 10 MG 5 MG ONCE DAILY
     Route: 065
     Dates: start: 20210824, end: 20210825
  2. Loratadine Orifarm [Concomitant]
     Indication: Product used for unknown indication
     Dosage: 10 MILLIGRAM DAILY;
     Dates: start: 20210720, end: 20210807
  3. PROMETHAZINE HYDROCHLORIDE\THIOUREA [Concomitant]
     Active Substance: PROMETHAZINE HYDROCHLORIDE\THIOUREA
     Indication: Product used for unknown indication
     Dosage: 50 MILLIGRAM DAILY; 25 MG 2 TABLETS ONCE A DAY AT 9 PM FOR BETTER SLEEP
     Dates: start: 20200715, end: 20210825

REACTIONS (17)
  - Anxiety [Recovered/Resolved]
  - Nausea [Recovered/Resolved]
  - Hallucination [Recovered/Resolved]
  - Hallucination, visual [Recovered/Resolved]
  - Abdominal pain [Recovered/Resolved]
  - Discomfort [Recovered/Resolved]
  - Fatigue [Recovered/Resolved]
  - Feeling cold [Recovered/Resolved]
  - Decreased appetite [Recovered/Resolved]
  - Insomnia [Recovered/Resolved]
  - Coordination abnormal [Recovered/Resolved]
  - Fatigue [Recovered/Resolved]
  - Confusional state [Recovered/Resolved]
  - Flatulence [Recovered/Resolved]
  - Hallucination, auditory [Recovered/Resolved]
  - Throat irritation [Recovered/Resolved]
  - Hallucination, olfactory [Recovered/Resolved]

NARRATIVE: CASE EVENT DATE: 20210824
